FAERS Safety Report 9432221 (Version 4)
Quarter: 2013Q3

REPORT INFORMATION
  Report Type: Report from Study
  Country: DE (occurrence: DE)
  Receive Date: 20130731
  Receipt Date: 20130910
  Transmission Date: 20140515
  Serious: Yes (Death, Hospitalization, Other)
  Sender: FDA-Public Use
  Company Number: PHHY2013DE080399

PATIENT
  Sex: Female
  Weight: 55 kg

DRUGS (11)
  1. AFINITOR [Suspect]
     Indication: BREAST CANCER METASTATIC
     Dosage: 10 MG, QD
     Route: 048
     Dates: start: 20120928, end: 20130212
  2. AFINITOR [Suspect]
     Dosage: 2.5 MG, QD
     Route: 048
     Dates: start: 20130524, end: 20130622
  3. AFINITOR [Suspect]
     Dosage: 5 MG, QD
     Route: 048
     Dates: start: 20130623, end: 20130722
  4. EXEMESTANE [Suspect]
     Indication: BREAST CANCER METASTATIC
     Dosage: 25 MG, QD
     Dates: start: 20120928, end: 20130212
  5. EXEMESTANE [Suspect]
     Dosage: 25 MG, QD
     Dates: start: 20130425, end: 20130722
  6. BISPHOSPHONATES [Concomitant]
  7. RAMIPRIL + HIDROCLOROTIAZIDA [Concomitant]
     Dosage: 1 DF, DAILY IN MORNING
  8. RAMIPRIL [Concomitant]
     Dosage: 5 MG, DAILY IN THE NIGHT
  9. BISOPROLOL [Concomitant]
     Dosage: 5 MG, DAILY IN MORNING
  10. NOVALGINE [Concomitant]
     Dosage: 30 DRP, PRN
  11. BUSCOPAN [Concomitant]
     Dosage: 40 MG, PRN

REACTIONS (9)
  - Cardiac failure [Fatal]
  - Ascites [Not Recovered/Not Resolved]
  - Oedema peripheral [Not Recovered/Not Resolved]
  - C-reactive protein increased [Unknown]
  - Thrombocytopenia [Not Recovered/Not Resolved]
  - Liver function test abnormal [Not Recovered/Not Resolved]
  - Infection [Not Recovered/Not Resolved]
  - Breast cancer metastatic [Not Recovered/Not Resolved]
  - Malignant neoplasm progression [Not Recovered/Not Resolved]
